FAERS Safety Report 9048601 (Version 1)
Quarter: 2013Q1

REPORT INFORMATION
  Report Type: Spontaneous
  Country: US (occurrence: None)
  Receive Date: 20130130
  Receipt Date: 20130130
  Transmission Date: 20140127
  Serious: Yes (Hospitalization)
  Sender: FDA-Public Use
  Company Number: None

PATIENT
  Age: 83 Year
  Sex: Female
  Weight: 67.8 kg

DRUGS (4)
  1. ALEVE [Suspect]
     Indication: ARTHRITIS
     Dosage: 2 TABLETS?CHRONIC
     Route: 048
  2. MVI [Concomitant]
  3. VIT D [Concomitant]
  4. VITAMIN B12 [Concomitant]

REACTIONS (7)
  - Gastrointestinal haemorrhage [None]
  - Haemorrhagic anaemia [None]
  - Colon cancer [None]
  - Atrial fibrillation [None]
  - Atrial thrombosis [None]
  - Asthenia [None]
  - Gastritis [None]
